FAERS Safety Report 5270760-9 (Version None)
Quarter: 2007Q1

REPORT INFORMATION
  Report Type: 
  Country: None (occurrence: None)
  Receive Date: 20070321
  Receipt Date: 20070308
  Transmission Date: 20070707
  Serious: Yes (Hospitalization, Disabling)
  Sender: FDA-Public Use
  Company Number: PHBS2006VE09431

PATIENT
  Age: 7 Year
  Sex: Male
  Weight: 30 kg

DRUGS (3)
  1. MEASLES AND RUBELLA VACCINE [Suspect]
     Dates: start: 20060606
  2. TEGRETOL [Suspect]
     Indication: ABNORMAL BEHAVIOUR
     Dosage: UNK, QD
     Route: 048
     Dates: start: 20060605, end: 20060615
  3. CATAFLAM [Concomitant]
     Indication: PYREXIA

REACTIONS (8)
  - BLISTER [None]
  - DRUG INTERACTION [None]
  - EPSTEIN-BARR VIRUS ANTIBODY POSITIVE [None]
  - MUCOSAL EROSION [None]
  - RASH ERYTHEMATOUS [None]
  - RESPIRATORY DISORDER [None]
  - SKIN HYPERPIGMENTATION [None]
  - STEVENS-JOHNSON SYNDROME [None]
